FAERS Safety Report 18985119 (Version 1)
Quarter: 2021Q1

REPORT INFORMATION
  Report Type: Spontaneous
  Country: NO (occurrence: NO)
  Receive Date: 20210309
  Receipt Date: 20210309
  Transmission Date: 20210420
  Serious: Yes (Hospitalization)
  Sender: FDA-Public Use
  Company Number: NO-SA-2021SA069526

PATIENT
  Age: 58 Year
  Sex: Male

DRUGS (2)
  1. PLAVIX [Suspect]
     Active Substance: CLOPIDOGREL BISULFATE
     Indication: MICROANGIOPATHY
     Dosage: 75 MG, QD
     Route: 048
     Dates: start: 20201223, end: 20210210
  2. ATORVASTATIN MYLAN [Suspect]
     Active Substance: ATORVASTATIN
     Indication: MICROANGIOPATHY
     Dosage: 20 MG, QD
     Route: 048
     Dates: start: 20201223, end: 20210210

REACTIONS (1)
  - Liver disorder [Recovering/Resolving]

NARRATIVE: CASE EVENT DATE: 20210123
